FAERS Safety Report 5723264-0 (Version None)
Quarter: 2008Q2

REPORT INFORMATION
  Report Type: 
  Country: None (occurrence: None)
  Receive Date: 20080430
  Receipt Date: 20080211
  Transmission Date: 20081010
  Serious: No
  Sender: FDA-Public Use
  Company Number: US-ASTRAZENECA-2008UW02928

PATIENT
  Age: 73 Year
  Sex: Male
  Weight: 86.2 kg

DRUGS (2)
  1. NEXIUM [Suspect]
     Indication: DYSPEPSIA
     Route: 048
     Dates: start: 20080201
  2. LENTE INSULIN [Concomitant]

REACTIONS (1)
  - BLOOD GLUCOSE ABNORMAL [None]
